FAERS Safety Report 9420185 (Version 2)
Quarter: 2019Q1

REPORT INFORMATION
  Report Type: Report from Study
  Country: GB (occurrence: GB)
  Receive Date: 20130725
  Receipt Date: 20190124
  Transmission Date: 20190418
  Serious: Yes (Hospitalization)
  Sender: FDA-Public Use
  Company Number: GB-ROCHE-1249505

PATIENT
  Age: 78 Year
  Sex: Female
  Weight: 72 kg

DRUGS (3)
  1. RITUXIMAB. [Suspect]
     Active Substance: RITUXIMAB
     Indication: RHEUMATOID ARTHRITIS
     Dosage: MOST RECENT DOSE PRIOR TO SAE WAS RECEIVED ON 11/JUN/2013
     Route: 065
     Dates: start: 20110804, end: 20130404
  2. HYDROXYCHLOROQUINE [Concomitant]
     Active Substance: HYDROXYCHLOROQUINE
  3. RITUXIMAB. [Suspect]
     Active Substance: RITUXIMAB
     Route: 042
     Dates: start: 20130321, end: 20130404

REACTIONS (7)
  - Hyperhidrosis [Unknown]
  - Neutropenia [Recovered/Resolved]
  - Chills [Unknown]
  - Neutropenia [Unknown]
  - Syncope [Unknown]
  - Chest pain [Unknown]
  - Angina pectoris [Unknown]

NARRATIVE: CASE EVENT DATE: 20130804
